FAERS Safety Report 5193475-4 (Version None)
Quarter: 2006Q4

REPORT INFORMATION
  Report Type: 
  Country: None (occurrence: None)
  Receive Date: 20061228
  Receipt Date: 20060512
  Transmission Date: 20070319
  Serious: No
  Sender: FDA-Public Use
  Company Number: US-GLAXOSMITHKLINE-A0605400A

PATIENT
  Age: 77 Year
  Sex: Male

DRUGS (3)
  1. FLONASE [Suspect]
     Dosage: 4SPR PER DAY
     Route: 045
     Dates: start: 20060512
  2. CLARITIN [Concomitant]
  3. PROSCAR [Concomitant]

REACTIONS (3)
  - DRUG ADMINISTRATION ERROR [None]
  - EXPIRED DRUG ADMINISTERED [None]
  - THERAPEUTIC RESPONSE UNEXPECTED [None]
